FAERS Safety Report 18472896 (Version 1)
Quarter: 2020Q4

REPORT INFORMATION
  Report Type: Spontaneous
  Country: US (occurrence: US)
  Receive Date: 20201105
  Receipt Date: 20201105
  Transmission Date: 20210114
  Serious: Yes (Life-Threatening, Hospitalization, Disabling)
  Sender: FDA-Public Use
  Company Number: None

PATIENT
  Age: 86 Year
  Sex: Female
  Weight: 50.4 kg

DRUGS (18)
  1. KEYTRUDA [Suspect]
     Active Substance: PEMBROLIZUMAB
     Indication: BREAST CANCER
     Dates: start: 20200115, end: 20200408
  2. ASPIRIN. [Concomitant]
     Active Substance: ASPIRIN
  3. LIQUID PROTEIN SUPPLEMENT [Concomitant]
  4. TYLENOL [Concomitant]
     Active Substance: ACETAMINOPHEN
  5. PREDNISONE. [Concomitant]
     Active Substance: PREDNISONE
  6. HEPARIN SODIUM PORCINE [Concomitant]
     Active Substance: HEPARIN SODIUM
  7. ALBUTEROLSULFATE NEBULIZATION SOLUTION [Concomitant]
  8. VITAMIN C [Concomitant]
     Active Substance: ASCORBIC ACID
  9. ANTACID TABLET (PROBIOTIC PRODUCT) [Concomitant]
  10. MULTIVITAMIN WITH MINERAL [Concomitant]
     Active Substance: MINERALS\VITAMINS
  11. POLYETHYLENE GLYCOL 3350/POTASSIUM CHLORIDE/SODIUM BICARBONATE/SODIUM CHLORIDE [Concomitant]
  12. CRAN B PAC [Concomitant]
  13. NYSTATIN. [Concomitant]
     Active Substance: NYSTATIN
  14. SEROQUEL [Concomitant]
     Active Substance: QUETIAPINE FUMARATE
  15. LEVETIRACETAM. [Concomitant]
     Active Substance: LEVETIRACETAM
  16. LEVOTHYROXINE SODIUM. [Concomitant]
     Active Substance: LEVOTHYROXINE SODIUM
  17. PANTOPRAZOLE [Concomitant]
     Active Substance: PANTOPRAZOLE
  18. CALCIUM ALGINATE [Concomitant]
     Active Substance: CALCIUM ALGINATE

REACTIONS (11)
  - Crying [None]
  - Aphasia [None]
  - Decreased appetite [None]
  - Asthenia [None]
  - Colitis [None]
  - Vomiting [None]
  - Diarrhoea [None]
  - Unresponsive to stimuli [None]
  - Screaming [None]
  - Cerebrovascular accident [None]
  - Hallucination [None]

NARRATIVE: CASE EVENT DATE: 20200521
